FAERS Safety Report 13511351 (Version 1)
Quarter: 2017Q2

REPORT INFORMATION
  Report Type: Spontaneous
  Country: US (occurrence: US)
  Receive Date: 20170504
  Receipt Date: 20170504
  Transmission Date: 20170830
  Serious: Yes (Hospitalization, Other)
  Sender: FDA-Public Use
  Company Number: US-B.I. PHARMACEUTICALS,INC./RIDGEFIELD-2017-BI-024202

PATIENT
  Sex: Male

DRUGS (1)
  1. PRADAXA [Suspect]
     Active Substance: DABIGATRAN ETEXILATE MESYLATE
     Indication: ATRIAL FIBRILLATION
     Route: 048

REACTIONS (8)
  - Rhabdomyolysis [Recovered/Resolved]
  - Contusion [Unknown]
  - Dehydration [Recovered/Resolved]
  - Mental status changes [Unknown]
  - Lower gastrointestinal haemorrhage [Recovered/Resolved]
  - Urinary tract infection staphylococcal [Unknown]
  - Acute kidney injury [Recovered/Resolved]
  - Renal failure [Unknown]
